FAERS Safety Report 14215590 (Version 1)
Quarter: 2017Q4

REPORT INFORMATION
  Report Type: Spontaneous
  Country: TW (occurrence: TW)
  Receive Date: 20171122
  Receipt Date: 20171122
  Transmission Date: 20180321
  Serious: Yes (Death, Hospitalization)
  Sender: FDA-Public Use
  Company Number: TW-ASTRAZENECA-2017SF16374

PATIENT

DRUGS (1)
  1. TAGRISSO [Suspect]
     Active Substance: OSIMERTINIB
     Route: 048
     Dates: start: 20170629

REACTIONS (1)
  - Interstitial lung disease [Fatal]
